FAERS Safety Report 20372545 (Version 3)
Quarter: 2022Q1

REPORT INFORMATION
  Report Type: Report from Study
  Country: US (occurrence: US)
  Receive Date: 20220125
  Receipt Date: 20220303
  Transmission Date: 20220423
  Serious: Yes (Hospitalization, Other)
  Sender: FDA-Public Use
  Company Number: US-TAKEDA-2022TUS004041

PATIENT
  Age: 54 Year
  Sex: Female

DRUGS (8)
  1. TEDUGLUTIDE [Suspect]
     Active Substance: TEDUGLUTIDE
     Indication: Short-bowel syndrome
     Dosage: 2.313 MILLIGRAM, QD
     Route: 058
     Dates: start: 202112, end: 20211230
  2. TEDUGLUTIDE [Suspect]
     Active Substance: TEDUGLUTIDE
     Indication: Short-bowel syndrome
     Dosage: 2.313 MILLIGRAM, QD
     Route: 058
     Dates: start: 202112, end: 20211230
  3. TEDUGLUTIDE [Suspect]
     Active Substance: TEDUGLUTIDE
     Indication: Short-bowel syndrome
     Dosage: 2.313 MILLIGRAM, QD
     Route: 058
     Dates: start: 202112, end: 20211230
  4. TEDUGLUTIDE [Suspect]
     Active Substance: TEDUGLUTIDE
     Indication: Short-bowel syndrome
     Dosage: 2.313 MILLIGRAM, QD
     Route: 058
     Dates: start: 202112, end: 20211230
  5. TEDUGLUTIDE [Suspect]
     Active Substance: TEDUGLUTIDE
     Dosage: 2.313 MILLIGRAM, QD
     Route: 058
     Dates: start: 20211217, end: 20211230
  6. TEDUGLUTIDE [Suspect]
     Active Substance: TEDUGLUTIDE
     Dosage: 2.313 MILLIGRAM, QD
     Route: 058
     Dates: start: 20211217, end: 20211230
  7. TEDUGLUTIDE [Suspect]
     Active Substance: TEDUGLUTIDE
     Dosage: 2.313 MILLIGRAM, QD
     Route: 058
     Dates: start: 20211217, end: 20211230
  8. TEDUGLUTIDE [Suspect]
     Active Substance: TEDUGLUTIDE
     Dosage: 2.313 MILLIGRAM, QD
     Route: 058
     Dates: start: 20211217, end: 20211230

REACTIONS (12)
  - Device related sepsis [Not Recovered/Not Resolved]
  - Swelling [Unknown]
  - Drug hypersensitivity [Unknown]
  - Arthralgia [Unknown]
  - Nausea [Unknown]
  - Joint swelling [Unknown]
  - Stoma complication [Unknown]
  - Vomiting [Unknown]
  - Pyrexia [Unknown]
  - Therapy interrupted [Unknown]
  - Drug hypersensitivity [Unknown]
  - Gastrointestinal stoma output increased [Unknown]

NARRATIVE: CASE EVENT DATE: 20211201
